FAERS Safety Report 5926682-0 (Version None)
Quarter: 2008Q4

REPORT INFORMATION
  Report Type: 
  Country: None (occurrence: None)
  Receive Date: 20081017
  Receipt Date: 20081009
  Transmission Date: 20090506
  Serious: Yes (Hospitalization, Other)
  Sender: FDA-Public Use
  Company Number: 20399

PATIENT
  Sex: Female

DRUGS (4)
  1. METHOTREXATE [Suspect]
  2. ENBREL [Suspect]
     Dates: start: 20060501
  3. CYCLOSPORINE [Concomitant]
  4. LEFLUNOMIDE [Concomitant]

REACTIONS (2)
  - GENERAL PHYSICAL HEALTH DETERIORATION [None]
  - OBLITERATIVE BRONCHIOLITIS [None]
